FAERS Safety Report 7222996-5 (Version None)
Quarter: 2011Q1

REPORT INFORMATION
  Report Type: 
  Country: None (occurrence: None)
  Receive Date: 20110112
  Receipt Date: 20090626
  Transmission Date: 20110831
  Serious: Yes (Hospitalization, Other)
  Sender: FDA-Public Use
  Company Number: PHHY2009FR13556

PATIENT
  Sex: Male

DRUGS (10)
  1. ELISOR [Concomitant]
     Dosage: 20 MG, QD
     Route: 048
  2. PLAVIX [Concomitant]
     Indication: HYPERTENSION
     Dosage: 75 MG, UNK
     Route: 048
  3. LASIX [Suspect]
     Dosage: UNK MG, QD
     Dates: start: 20090312
  4. HEXAQUINE [Concomitant]
     Dosage: 1 DF, BID
     Route: 048
     Dates: start: 20081001, end: 20090305
  5. KERLONE [Concomitant]
     Indication: HYPERTENSION
     Dosage: 20 MG
     Route: 048
     Dates: end: 20090310
  6. TEMESTA [Concomitant]
     Dosage: 2.5 MG, QD
     Route: 048
  7. NISISCO [Suspect]
     Indication: HYPERTENSION
     Dosage: 1 DF (160/25MG), QD
     Route: 048
     Dates: start: 20071001, end: 20090304
  8. LASIX [Suspect]
     Indication: HYPERTENSION
     Dosage: 40 MG, QD
     Route: 048
     Dates: start: 20071001, end: 20090305
  9. PRAXILENE [Concomitant]
     Indication: ARTERITIS OBLITERANS
     Dosage: 200 MG, TID
     Route: 048
     Dates: end: 20090306
  10. ALDACTONE [Suspect]
     Indication: HYPERTENSION
     Dosage: 0.5 DF (50 MG) DAILY
     Route: 048
     Dates: start: 20071001, end: 20090304

REACTIONS (7)
  - HYPERKALAEMIA [None]
  - ARTERIAL STENOSIS [None]
  - GENERAL PHYSICAL HEALTH DETERIORATION [None]
  - DEHYDRATION [None]
  - BACK PAIN [None]
  - RENAL FAILURE [None]
  - HYPONATRAEMIA [None]
